FAERS Safety Report 17256246 (Version 1)
Quarter: 2020Q1

REPORT INFORMATION
  Report Type: Spontaneous
  Country: IL (occurrence: IL)
  Receive Date: 20200110
  Receipt Date: 20200110
  Transmission Date: 20200409
  Serious: Yes (Other)
  Sender: FDA-Public Use
  Company Number: IL-KADMON PHARMACEUTICALS, LLC-KAD202001-000004

PATIENT
  Age: 74 Year
  Sex: Female

DRUGS (4)
  1. PARITAPREVIR/RITONAVIR/OMBITASVIR [Suspect]
     Active Substance: OMBITASVIR\PARITAPREVIR\RITONAVIR
     Indication: CHRONIC HEPATITIS C
     Dosage: 2 TABLETS
     Dates: start: 20150301, end: 20150324
  2. DASABUVIR [Suspect]
     Active Substance: DASABUVIR
     Indication: CHRONIC HEPATITIS C
     Dosage: 250 MG
     Dates: start: 20150301, end: 20150324
  3. RIBAVIRIN. [Suspect]
     Active Substance: RIBAVIRIN
     Indication: CHRONIC HEPATITIS C
     Dosage: 400 MG
     Dates: start: 20150301, end: 20150324
  4. RAMIPRIL. [Concomitant]
     Active Substance: RAMIPRIL
     Indication: HYPERTENSION

REACTIONS (1)
  - Drug-induced liver injury [Recovered/Resolved]
